FAERS Safety Report 5768229-8 (Version None)
Quarter: 2008Q2

REPORT INFORMATION
  Report Type: 
  Country: None (occurrence: None)
  Receive Date: 20080612
  Receipt Date: 20080605
  Transmission Date: 20081010
  Serious: Yes (Disabling, Other)
  Sender: FDA-Public Use
  Company Number: US-MERCK-0806USA00999

PATIENT
  Age: 55 Year
  Sex: Female

DRUGS (12)
  1. FOSAMAX [Suspect]
     Indication: OSTEOPENIA
     Route: 048
     Dates: start: 20030201, end: 20071101
  2. COREG [Concomitant]
     Route: 065
  3. PLAVIX [Concomitant]
     Route: 065
  4. NEXIUM [Concomitant]
     Route: 065
  5. ASPIRIN [Concomitant]
     Route: 065
  6. FOSINOPRIL SODIUM [Concomitant]
     Route: 065
  7. LORAZEPAM [Concomitant]
     Route: 065
  8. AMBIEN [Concomitant]
     Route: 065
  9. ADVAIR DISKUS 100/50 [Concomitant]
     Route: 065
  10. NORVASC [Concomitant]
     Route: 065
  11. NITROGLYCERIN [Concomitant]
     Route: 065
  12. CREON [Concomitant]
     Route: 065

REACTIONS (1)
  - BONE DISORDER [None]
